FAERS Safety Report 5733964-4 (Version None)
Quarter: 2008Q2

REPORT INFORMATION
  Report Type: 
  Country: None (occurrence: None)
  Receive Date: 20080509
  Receipt Date: 20080122
  Transmission Date: 20081010
  Serious: Yes (Hospitalization)
  Sender: FDA-Public Use
  Company Number: US-BOEHRINGER INGELHEIM GMBH, GERMANY-2007-BP-16659BP

PATIENT
  Sex: Female
  Weight: 69 kg

DRUGS (10)
  1. MIRAPEX [Suspect]
     Indication: RESTLESS LEGS SYNDROME
     Dates: start: 20040115, end: 20060801
  2. SYNTHROID [Concomitant]
  3. TOPAMAX [Concomitant]
  4. KLONOPIN [Concomitant]
  5. XENICAL [Concomitant]
     Dates: start: 20040301
  6. PRIMIDONE [Concomitant]
  7. CALCIUM [Concomitant]
  8. IRON [Concomitant]
  9. HORMONAL REPLACEMENT THERAPY [Concomitant]
     Indication: HORMONE THERAPY
  10. MYCELEX [Concomitant]
     Indication: STOMATITIS

REACTIONS (9)
  - ANXIETY [None]
  - COMPULSIVE SHOPPING [None]
  - EMOTIONAL DISTRESS [None]
  - FEAR [None]
  - GAMBLING [None]
  - HYPERSEXUALITY [None]
  - OBSESSIVE-COMPULSIVE DISORDER [None]
  - PAIN [None]
  - SUICIDAL IDEATION [None]
